FAERS Safety Report 20259294 (Version 3)
Quarter: 2022Q1

REPORT INFORMATION
  Report Type: Report from Study
  Country: GB (occurrence: GB)
  Receive Date: 20211230
  Receipt Date: 20220120
  Transmission Date: 20220423
  Serious: Yes (Hospitalization)
  Sender: FDA-Public Use
  Company Number: GB-PFIZER INC-202101758133

PATIENT
  Age: 33 Year
  Sex: Female

DRUGS (4)
  1. MYLOTARG [Suspect]
     Active Substance: GEMTUZUMAB OZOGAMICIN
     Indication: Acute myeloid leukaemia
     Dosage: 3 MG/M2 (MAX 5MG OR 1 VIAL IF 2 DOSES ALLOCATED, NO MAXIMUM IF 1 DOSE ALLOCATED)
     Route: 042
     Dates: start: 20211116, end: 20211116
  2. CYTARABINE [Suspect]
     Active Substance: CYTARABINE
     Indication: Acute myeloid leukaemia
     Dosage: UNK
     Dates: start: 20211113, end: 20211123
  3. MIDOSTAURIN [Suspect]
     Active Substance: MIDOSTAURIN
     Indication: Acute myeloid leukaemia
     Dosage: 50 MG EVERY 12 HOURS
     Route: 048
     Dates: start: 20211124, end: 20211208
  4. DAUNORUBICIN [Suspect]
     Active Substance: DAUNORUBICIN
     Indication: Acute myeloid leukaemia
     Dosage: UNK
     Dates: start: 20211113, end: 20211117

REACTIONS (1)
  - Neutropenic infection [Recovered/Resolved]

NARRATIVE: CASE EVENT DATE: 20211208
